FAERS Safety Report 14941735 (Version 2)
Quarter: 2018Q2

REPORT INFORMATION
  Report Type: Spontaneous
  Country: US (occurrence: US)
  Receive Date: 20180527
  Receipt Date: 20180607
  Transmission Date: 20180711
  Serious: No
  Sender: FDA-Public Use
  Company Number: US-009507513-1805USA012097

PATIENT
  Age: 36 Year
  Sex: Female

DRUGS (1)
  1. GANIRELIX ACETATE INJECTION [Suspect]
     Active Substance: GANIRELIX ACETATE
     Indication: INFERTILITY
     Dosage: 250 MICROGRAM, ONCE
     Route: 058
     Dates: start: 20180523, end: 20180523

REACTIONS (5)
  - Injection site pain [Unknown]
  - Injection site pruritus [Unknown]
  - Ecchymosis [Recovered/Resolved]
  - Injection site reaction [Unknown]
  - Erythema [Unknown]

NARRATIVE: CASE EVENT DATE: 20180523
